FAERS Safety Report 24277860 (Version 1)
Quarter: 2024Q3

REPORT INFORMATION
  Report Type: Spontaneous
  Country: PT (occurrence: PT)
  Receive Date: 20240903
  Receipt Date: 20240903
  Transmission Date: 20241017
  Serious: Yes (Life-Threatening, Hospitalization)
  Sender: MYLAN
  Company Number: PT-MYLANLABS-2024M1079721

PATIENT
  Age: 58 Year
  Sex: Female

DRUGS (3)
  1. ALPRAZOLAM [Suspect]
     Active Substance: ALPRAZOLAM
     Indication: Major depression
     Dosage: 3 MILLIGRAM TWO TWICE DAILY [SIC]
     Route: 065
  2. ALPRAZOLAM [Suspect]
     Active Substance: ALPRAZOLAM
     Dosage: UNK, ADDITIONAL ALPRAZOLAM, ACQUIRED WITHOUT A PRESCRIPTION (20?30 MG/DAY)
     Route: 065
  3. ALPRAZOLAM [Suspect]
     Active Substance: ALPRAZOLAM
     Dosage: UNK, THERAPY RESTARTED
     Route: 065

REACTIONS (7)
  - Stress cardiomyopathy [Recovered/Resolved]
  - Acute pulmonary oedema [Recovered/Resolved]
  - Intentional product misuse [Recovered/Resolved]
  - Treatment noncompliance [Recovered/Resolved]
  - Prescription drug used without a prescription [Recovered/Resolved]
  - Overdose [Recovered/Resolved]
  - Drug withdrawal syndrome [Recovered/Resolved]
